FAERS Safety Report 15524951 (Version 1)
Quarter: 2018Q4

REPORT INFORMATION
  Report Type: Other
  Country: KR (occurrence: KR)
  Receive Date: 20181019
  Receipt Date: 20181019
  Transmission Date: 20190205
  Serious: Yes (Life-Threatening, Hospitalization)
  Sender: FDA-Public Use
  Company Number: KR-NOSTRUM LABORATORIES, INC.-2056499

PATIENT
  Age: 12 Year
  Sex: Female

DRUGS (1)
  1. DAPSONE. [Suspect]
     Active Substance: DAPSONE
     Indication: DERMATOSIS
     Route: 048

REACTIONS (7)
  - Hepatorenal syndrome [Recovered/Resolved]
  - Hepatic encephalopathy [Recovered/Resolved]
  - Drug reaction with eosinophilia and systemic symptoms [Recovered/Resolved]
  - Acute hepatic failure [Recovered/Resolved]
  - Coagulopathy [Recovered/Resolved]
  - Ammonia increased [Recovered/Resolved]
  - Liver transplant [Recovered/Resolved]
